FAERS Safety Report 8250060-5 (Version None)
Quarter: 2012Q1

REPORT INFORMATION
  Report Type: 
  Country: None (occurrence: None)
  Receive Date: 20120328
  Receipt Date: 20120315
  Transmission Date: 20120608
  Serious: Yes (Other)
  Sender: FDA-Public Use
  Company Number: 2012SP014532

PATIENT
  Age: 72 Year
  Sex: Male

DRUGS (8)
  1. BETNOVATE [Suspect]
     Indication: DRY SKIN
     Dosage: UNK
     Dates: start: 20110101, end: 20120101
  2. UREA (UREA /00481901/) [Suspect]
     Indication: PRODUCT USED FOR UNKNOWN INDICATION
     Dosage: UNK
     Dates: start: 20110101, end: 20120101
  3. HARVIX (HEPATITIS A VACCINE) [Suspect]
     Indication: PROPHYLAXIS
     Dosage: 1 DF, QD, UNK
     Dates: start: 20110101, end: 20120101
  4. AQUEOUS CREAM (PHENOXYETHANOL) [Suspect]
     Indication: DRY SKIN
     Dosage: UNK
     Dates: start: 20110101, end: 20120101
  5. ELOCON [Suspect]
     Indication: DRY SKIN
     Dosage: UNK
     Dates: start: 20110101, end: 20120101
  6. REVAXIS (REVAXIS 01525501/) [Suspect]
     Indication: PROPHYLAXIS
     Dosage: 1 DF, QD, UNK
  7. INFLUENZA VIRUS (INFLUENZA VIRUS) [Suspect]
     Indication: PROPHYLAXIS
     Dosage: 1 DF, QD, UNK
  8. MENTHOL (MENTHOL /00482701/) [Suspect]
     Indication: DRY SKIN
     Dosage: UNK
     Dates: start: 20110101, end: 20120101

REACTIONS (1)
  - LOSS OF CONSCIOUSNESS [None]
